FAERS Safety Report 9998340 (Version 2)
Quarter: 2014Q1

REPORT INFORMATION
  Report Type: Spontaneous
  Country: ZA (occurrence: ZA)
  Receive Date: 20140312
  Receipt Date: 20140312
  Transmission Date: 20141002
  Serious: Yes (Other)
  Sender: FDA-Public Use
  Company Number: ZA-MERCK-1402ZAF002347

PATIENT
  Age: 64 Year
  Sex: Male

DRUGS (2)
  1. CANCIDAS 50MG [Suspect]
     Indication: CANDIDA INFECTION
     Dosage: UNK
  2. EPILIM [Suspect]
     Dosage: 800 G, Q12H

REACTIONS (7)
  - Drug-induced liver injury [Recovered/Resolved]
  - Renal failure [Recovered/Resolved]
  - Hemiplegia [Recovered/Resolved]
  - Endotracheal intubation [Recovered/Resolved]
  - Haemorrhage intracranial [Recovered/Resolved]
  - Intracranial pressure increased [Recovered/Resolved]
  - Renal tubular necrosis [Recovered/Resolved]
